FAERS Safety Report 7810120-7 (Version None)
Quarter: 2011Q4

REPORT INFORMATION
  Report Type: 
  Country: None (occurrence: None)
  Receive Date: 20111012
  Receipt Date: 20111005
  Transmission Date: 20120403
  Serious: Yes (Hospitalization, Other)
  Sender: FDA-Public Use
  Company Number: US-CEPHALON-2011004233

PATIENT
  Sex: Male
  Weight: 98 kg

DRUGS (15)
  1. ADVAIR DISKUS 100/50 [Concomitant]
  2. PROVIGIL [Suspect]
     Route: 048
     Dates: start: 20110401, end: 20110701
  3. BENICAR [Concomitant]
  4. SPIRIVA [Concomitant]
  5. FISH OIL [Concomitant]
  6. PROVIGIL [Suspect]
     Indication: SLEEP APNOEA SYNDROME
     Route: 048
     Dates: start: 20100801, end: 20110401
  7. ALBUTEROL [Concomitant]
     Dates: end: 20110401
  8. PROZAC [Concomitant]
  9. COD LIVER OIL [Concomitant]
  10. FLAXSEED OIL [Concomitant]
  11. MULTI-VITAMIN [Concomitant]
  12. VITAMIN D [Concomitant]
  13. THEOPHYLLINE [Concomitant]
  14. XANAX [Concomitant]
  15. AMBIEN [Concomitant]

REACTIONS (6)
  - MOOD SWINGS [None]
  - DELUSION [None]
  - INSOMNIA [None]
  - LOWER RESPIRATORY TRACT INFECTION FUNGAL [None]
  - BLOOD PRESSURE FLUCTUATION [None]
  - HEART RATE INCREASED [None]
